FAERS Safety Report 5843669-7 (Version None)
Quarter: 2008Q3

REPORT INFORMATION
  Report Type: 
  Country: None (occurrence: None)
  Receive Date: 20080812
  Receipt Date: 20080812
  Transmission Date: 20090109
  Serious: Yes (Other)
  Sender: FDA-Public Use
  Company Number: None

PATIENT
  Age: 32 Year
  Sex: Female
  Weight: 59.4212 kg

DRUGS (2)
  1. LAMOTRIGINE [Suspect]
     Indication: CONVULSION
     Dosage: 200 EVERY MORNING PO
     Route: 048
     Dates: start: 20080802, end: 20080812
  2. LAMOTRIGINE [Suspect]
     Dosage: 300 EVERY EVENING PO
     Route: 048

REACTIONS (5)
  - ABDOMINAL PAIN [None]
  - CONVULSION [None]
  - FATIGUE [None]
  - NAUSEA [None]
  - THERAPEUTIC RESPONSE UNEXPECTED WITH DRUG SUBSTITUTION [None]
